FAERS Safety Report 15183691 (Version 8)
Quarter: 2020Q2

REPORT INFORMATION
  Report Type: Report from Study
  Country: US (occurrence: US)
  Receive Date: 20180723
  Receipt Date: 20200403
  Transmission Date: 20200713
  Serious: Yes (Hospitalization, Other)
  Sender: FDA-Public Use
  Company Number: US-ACTELION-A-US2018-173547

PATIENT
  Sex: Male
  Weight: 97.51 kg

DRUGS (7)
  1. VELETRI [Suspect]
     Active Substance: EPOPROSTENOL
     Indication: PULMONARY ARTERIAL HYPERTENSION
     Dosage: 7 NG/KG, PER MIN
     Route: 042
  2. ELIQUIS [Concomitant]
     Active Substance: APIXABAN
  3. LETAIRIS [Concomitant]
     Active Substance: AMBRISENTAN
  4. VELETRI [Suspect]
     Active Substance: EPOPROSTENOL
     Dosage: 44 UNK
     Route: 042
  5. ADCIRCA [Suspect]
     Active Substance: TADALAFIL
     Indication: PRODUCT USED FOR UNKNOWN INDICATION
     Dosage: 10 MG, QD
     Route: 065
  6. VELETRI [Suspect]
     Active Substance: EPOPROSTENOL
     Dosage: 8 NG/KG, PER MIN
     Route: 042
  7. VELETRI [Suspect]
     Active Substance: EPOPROSTENOL
     Dosage: 38 NG/KG, PER MIN
     Route: 042

REACTIONS (20)
  - Decreased appetite [Unknown]
  - Diarrhoea [Not Recovered/Not Resolved]
  - Pain [Unknown]
  - Metabolic disorder [Unknown]
  - Condition aggravated [Unknown]
  - Application site pruritus [Unknown]
  - Weight decreased [Unknown]
  - Headache [Unknown]
  - Arthralgia [Unknown]
  - Hospitalisation [Unknown]
  - Dehydration [Unknown]
  - Sinus congestion [Unknown]
  - Hypotension [Unknown]
  - Pain in jaw [Not Recovered/Not Resolved]
  - Fluid retention [Unknown]
  - Influenza [Unknown]
  - Infection [Unknown]
  - Nasopharyngitis [Unknown]
  - Middle ear effusion [Unknown]
  - Application site dryness [Unknown]
